FAERS Safety Report 9569427 (Version 2)
Quarter: 2013Q3

REPORT INFORMATION
  Report Type: Spontaneous
  Country: US (occurrence: US)
  Receive Date: 20130930
  Receipt Date: 20130930
  Transmission Date: 20140515
  Serious: No
  Sender: FDA-Public Use
  Company Number: US-AMGEN-USASP2013036347

PATIENT
  Age: 43 Year
  Sex: Female

DRUGS (2)
  1. ENBREL [Suspect]
     Indication: ANKYLOSING SPONDYLITIS
     Dosage: 50 MG, QWK
     Route: 065
     Dates: start: 20130225, end: 20130729
  2. REMICAIDE [Concomitant]
     Dosage: UNK

REACTIONS (3)
  - Tendon disorder [Not Recovered/Not Resolved]
  - Joint swelling [Recovered/Resolved]
  - Migraine [Recovered/Resolved]
